FAERS Safety Report 5047046-0 (Version None)
Quarter: 2006Q3

REPORT INFORMATION
  Report Type: 
  Country: None (occurrence: None)
  Receive Date: 20060703
  Receipt Date: 20060620
  Transmission Date: 20061208
  Serious: Yes (Other)
  Sender: FDA-Public Use
  Company Number: 2006078436

PATIENT
  Age: 64 Year
  Sex: Male
  Weight: 71.2147 kg

DRUGS (3)
  1. LIPITOR [Suspect]
     Indication: BLOOD CHOLESTEROL INCREASED
     Dosage: 10 MG (10 MG, DAILY)
     Dates: start: 20060415
  2. PLAVIX [Concomitant]
  3. AMLODIPINE/LISINOPRIL (AMLODIPINE, LISINOPRIL) [Concomitant]

REACTIONS (2)
  - ANGIOPLASTY [None]
  - PROSTATIC SPECIFIC ANTIGEN INCREASED [None]
